FAERS Safety Report 4686789-5 (Version None)
Quarter: 2005Q2

REPORT INFORMATION
  Report Type: 
  Country: None (occurrence: None)
  Receive Date: 20050608
  Receipt Date: 20050525
  Transmission Date: 20051028
  Serious: Yes (Other)
  Sender: FDA-Public Use
  Company Number: DE-2005-004878

PATIENT
  Age: 43 Year
  Sex: Female
  Weight: 54 kg

DRUGS (1)
  1. MIRENA [Suspect]
     Dosage: 20 UG CONT INTRA-UTERINE
     Route: 015
     Dates: start: 20040401

REACTIONS (4)
  - ALANINE AMINOTRANSFERASE INCREASED [None]
  - ASPARTATE AMINOTRANSFERASE INCREASED [None]
  - GAMMA-GLUTAMYLTRANSFERASE INCREASED [None]
  - VIRAL INFECTION [None]
